FAERS Safety Report 8034533-6 (Version None)
Quarter: 2011Q4

REPORT INFORMATION
  Report Type: 
  Country: None (occurrence: None)
  Receive Date: 20111202
  Receipt Date: 20110823
  Transmission Date: 20120403
  Serious: No
  Sender: FDA-Public Use
  Company Number: PHEH2011US02494

PATIENT
  Age: 26 Year
  Sex: Female

DRUGS (1)
  1. FANAPT [Suspect]
     Dosage: BID

REACTIONS (2)
  - ASTHENIA [None]
  - APATHY [None]
